FAERS Safety Report 16038269 (Version 1)
Quarter: 2019Q1

REPORT INFORMATION
  Report Type: Spontaneous
  Country: IN (occurrence: IN)
  Receive Date: 20190305
  Receipt Date: 20190305
  Transmission Date: 20190418
  Serious: Yes (Other)
  Sender: FDA-Public Use
  Company Number: IN-MYLANLABS-2019M1020164

PATIENT
  Age: 32 Year
  Sex: Male

DRUGS (2)
  1. ATROPINE. [Suspect]
     Active Substance: ATROPINE
     Indication: PRODUCT USED FOR UNKNOWN INDICATION
     Dosage: RECEIVED ATRACURIUM-BESILATE INSTEAD OF ATROPINE
     Route: 065
  2. ATRACURIUM [Suspect]
     Active Substance: ATRACURIUM
     Indication: PRODUCT USED FOR UNKNOWN INDICATION
     Dosage: RECEIVED ATRACURIUM-BESILATE INSTEAD OF ATROPINE
     Route: 065

REACTIONS (4)
  - Restlessness [Recovered/Resolved]
  - Apnoea [Recovered/Resolved]
  - Unresponsive to stimuli [Recovered/Resolved]
  - Product label confusion [Recovered/Resolved]
